FAERS Safety Report 7799950-8 (Version None)
Quarter: 2011Q4

REPORT INFORMATION
  Report Type: 
  Country: None (occurrence: None)
  Receive Date: 20111006
  Receipt Date: 20110930
  Transmission Date: 20120403
  Serious: Yes (Disabling)
  Sender: FDA-Public Use
  Company Number: NL-ABBOTT-11P-114-0860113-00

PATIENT
  Age: 53 Year
  Sex: Male

DRUGS (5)
  1. HUMIRA [Suspect]
     Indication: ANKYLOSING SPONDYLITIS
     Route: 058
     Dates: start: 20110801
  2. OXAZEPAM [Concomitant]
     Indication: PAIN
     Route: 065
  3. TRAMADOL HCL [Concomitant]
     Indication: PAIN
     Route: 065
  4. ASPIRIN [Concomitant]
     Indication: PAIN
     Route: 065
  5. ZOPICLON [Concomitant]
     Indication: PAIN
     Route: 065

REACTIONS (20)
  - POOR DENTAL CONDITION [None]
  - GINGIVAL RECESSION [None]
  - HOT FLUSH [None]
  - TINNITUS [None]
  - PERIODONTITIS [None]
  - HYPERHIDROSIS [None]
  - DRUG EFFECT DECREASED [None]
  - IMPAIRED WORK ABILITY [None]
  - GINGIVAL BLEEDING [None]
  - COUGH [None]
  - DRUG INEFFECTIVE [None]
  - RESTLESS LEGS SYNDROME [None]
  - ARTHRALGIA [None]
  - VIRAL INFECTION [None]
  - BONE PAIN [None]
  - PAIN IN EXTREMITY [None]
  - FATIGUE [None]
  - MYALGIA [None]
  - SENSORY DISTURBANCE [None]
  - DECREASED IMMUNE RESPONSIVENESS [None]
